FAERS Safety Report 21959876 (Version 1)
Quarter: 2023Q1

REPORT INFORMATION
  Report Type: Report from Study
  Country: US (occurrence: US)
  Receive Date: 20230206
  Receipt Date: 20230206
  Transmission Date: 20230417
  Serious: Yes (Other)
  Sender: FDA-Public Use
  Company Number: US-ABBVIE-22K-163-4425693-00

PATIENT
  Age: 57 Year
  Sex: Female

DRUGS (1)
  1. HUMIRA [Suspect]
     Active Substance: ADALIMUMAB
     Indication: Hidradenitis
     Dosage: CITRATE FREE
     Route: 058
     Dates: start: 20220430

REACTIONS (6)
  - Foot deformity [Recovering/Resolving]
  - Ligament rupture [Recovering/Resolving]
  - Hidradenitis [Unknown]
  - Feeling jittery [Recovering/Resolving]
  - Asthenia [Unknown]
  - Acne [Unknown]

NARRATIVE: CASE EVENT DATE: 20220430
